FAERS Safety Report 6803080-9 (Version None)
Quarter: 2010Q2

REPORT INFORMATION
  Report Type: 
  Country: None (occurrence: None)
  Receive Date: 20100628
  Receipt Date: 20100621
  Transmission Date: 20101027
  Serious: Yes (Death)
  Sender: FDA-Public Use
  Company Number: US-CELGENEUS-163-21880-10062057

PATIENT
  Sex: Male

DRUGS (5)
  1. REVLIMID [Suspect]
     Indication: MULTIPLE MYELOMA
     Route: 048
     Dates: start: 20100501
  2. REVLIMID [Suspect]
     Route: 048
     Dates: start: 20100301
  3. REVLIMID [Suspect]
     Route: 048
     Dates: start: 20080101, end: 20080101
  4. REVLIMID [Suspect]
     Route: 048
     Dates: start: 20070601, end: 20070101
  5. REVLIMID [Suspect]
     Route: 048
     Dates: start: 20061101

REACTIONS (1)
  - DEATH [None]
